FAERS Safety Report 6300888-3 (Version None)
Quarter: 2009Q3

REPORT INFORMATION
  Report Type: 
  Country: None (occurrence: None)
  Receive Date: 20090807
  Receipt Date: 20090316
  Transmission Date: 20100115
  Serious: No
  Sender: FDA-Public Use
  Company Number: US-BAYER-200915689NA

PATIENT
  Age: 40 Year
  Sex: Female

DRUGS (5)
  1. ULTRAVIST 370 [Suspect]
     Indication: ANGIOGRAM
     Dosage: TOTAL DAILY DOSE: 100 ML  UNIT DOSE: 100 ML
     Route: 042
     Dates: start: 20081116, end: 20081116
  2. DUONEBS [Concomitant]
  3. INSULIN [Concomitant]
  4. TYLENOL (CAPLET) [Concomitant]
  5. ZANTAC [Concomitant]

REACTIONS (1)
  - URTICARIA [None]
